FAERS Safety Report 25199096 (Version 1)
Quarter: 2025Q2

REPORT INFORMATION
  Report Type: Spontaneous
  Country: US (occurrence: US)
  Receive Date: 20250415
  Receipt Date: 20250415
  Transmission Date: 20250716
  Serious: Yes (Life-Threatening, Other)
  Sender: LEADING PHARMA
  Company Number: US-LEADINGPHARMA-US-2025LEALIT00069

PATIENT
  Age: 36 Year
  Sex: Female

DRUGS (8)
  1. LIDOCAINE [Suspect]
     Active Substance: LIDOCAINE
     Indication: Induction of anaesthesia
     Route: 042
  2. CLOMIPRAMINE [Suspect]
     Active Substance: CLOMIPRAMINE
     Indication: Product used for unknown indication
     Route: 065
  3. KETAMINE [Concomitant]
     Active Substance: KETAMINE
     Indication: Product used for unknown indication
     Route: 042
  4. KETAMINE [Concomitant]
     Active Substance: KETAMINE
     Route: 030
  5. GABAPENTIN [Concomitant]
     Active Substance: GABAPENTIN
     Indication: Product used for unknown indication
     Route: 065
  6. SUCCINYLCHOLINE CHLORIDE [Concomitant]
     Active Substance: SUCCINYLCHOLINE CHLORIDE
     Indication: Induction of anaesthesia
     Route: 065
  7. METHOHEXITAL [Concomitant]
     Active Substance: METHOHEXITAL
     Indication: Induction of anaesthesia
     Route: 065
  8. LITHIUM [Concomitant]
     Active Substance: LITHIUM
     Route: 065

REACTIONS (2)
  - Status epilepticus [Recovering/Resolving]
  - Drug interaction [Unknown]
